FAERS Safety Report 6755401-3 (Version None)
Quarter: 2010Q2

REPORT INFORMATION
  Report Type: 
  Country: None (occurrence: None)
  Receive Date: 20100604
  Receipt Date: 20100524
  Transmission Date: 20101027
  Serious: Yes (Hospitalization, Disabling)
  Sender: FDA-Public Use
  Company Number: JP-PFIZER INC-2009267410

PATIENT
  Age: 59 Year
  Sex: Female
  Weight: 44.4 kg

DRUGS (3)
  1. SUNITINIB MALATE [Suspect]
     Indication: METASTATIC RENAL CELL CARCINOMA
     Dosage: 50 MG, DAILY, TDD 50 MG
     Route: 048
     Dates: start: 20090114, end: 20090125
  2. NORVASC [Concomitant]
     Dosage: UNK
     Route: 048
  3. CYANOCOBALAMIN [Concomitant]
     Dosage: UNK
     Route: 048

REACTIONS (4)
  - PLATELET COUNT DECREASED [None]
  - PYREXIA [None]
  - THYROIDITIS [None]
  - WHITE BLOOD CELL COUNT DECREASED [None]
